FAERS Safety Report 4367033-5 (Version None)
Quarter: 2004Q2

REPORT INFORMATION
  Report Type: 
  Country: None (occurrence: None)
  Receive Date: 20040527
  Receipt Date: 20040527
  Transmission Date: 20050107
  Serious: Yes (Hospitalization)
  Sender: FDA-Public Use
  Company Number: None

PATIENT
  Age: 54 Year
  Sex: Female

DRUGS (2)
  1. GLIPIZIDE [Suspect]
  2. METFORMIN HCL [Suspect]

REACTIONS (5)
  - ABDOMINAL PAIN [None]
  - ACCIDENTAL OVERDOSE [None]
  - FATIGUE [None]
  - HYPOGLYCAEMIA [None]
  - NAUSEA [None]
